FAERS Safety Report 8378902-3 (Version None)
Quarter: 2012Q2

REPORT INFORMATION
  Report Type: 
  Country: None (occurrence: None)
  Receive Date: 20120522
  Receipt Date: 20120522
  Transmission Date: 20120825
  Serious: No
  Sender: FDA-Public Use
  Company Number: None

PATIENT
  Sex: Female

DRUGS (1)
  1. ENBREL [Suspect]
     Dosage: 50MG QW SQ
     Route: 058
     Dates: start: 20120510, end: 20120512

REACTIONS (5)
  - INJECTION SITE REACTION [None]
  - SKIN DISCOLOURATION [None]
  - HYPERAESTHESIA [None]
  - PYREXIA [None]
  - SWELLING [None]
